FAERS Safety Report 7512803-5 (Version None)
Quarter: 2011Q2

REPORT INFORMATION
  Report Type: 
  Country: None (occurrence: None)
  Receive Date: 20110531
  Receipt Date: 20110523
  Transmission Date: 20111010
  Serious: Yes (Hospitalization)
  Sender: FDA-Public Use
  Company Number: B0722307A

PATIENT
  Age: 62 Year
  Sex: Female

DRUGS (1)
  1. VALTREX [Suspect]
     Indication: HERPES ZOSTER
     Dosage: 1000MG PER DAY
     Route: 048
     Dates: start: 20110425, end: 20110427

REACTIONS (4)
  - ALTERED STATE OF CONSCIOUSNESS [None]
  - TREMOR [None]
  - OVERDOSE [None]
  - DYSARTHRIA [None]
